FAERS Safety Report 11708570 (Version 1)
Quarter: 2015Q4

REPORT INFORMATION
  Report Type: Spontaneous
  Country: US (occurrence: US)
  Receive Date: 20151104
  Receipt Date: 20151104
  Transmission Date: 20160304
  Serious: Yes (Hospitalization)
  Sender: FDA-Public Use
  Company Number: US-ELI_LILLY_AND_COMPANY-US201101000684

PATIENT
  Age: 59 Year
  Sex: Female

DRUGS (2)
  1. FORTEO [Suspect]
     Active Substance: TERIPARATIDE
     Indication: OSTEOPOROSIS
     Dosage: 20 UG, DAILY (1/D)
     Route: 065
     Dates: start: 20101118
  2. FORTEO [Suspect]
     Active Substance: TERIPARATIDE
     Dosage: 20 UG, DAILY (1/D)
     Route: 065

REACTIONS (8)
  - Tooth fracture [Unknown]
  - Hyperhidrosis [Recovering/Resolving]
  - Arthralgia [Unknown]
  - Injection site bruising [Recovered/Resolved]
  - Pneumonia [Recovering/Resolving]
  - Cough [Recovering/Resolving]
  - Pain in extremity [Unknown]
  - Dental caries [Unknown]

NARRATIVE: CASE EVENT DATE: 201012
